FAERS Safety Report 24143057 (Version 1)
Quarter: 2024Q3

REPORT INFORMATION
  Report Type: Report from Study
  Country: US (occurrence: US)
  Receive Date: 20240726
  Receipt Date: 20240726
  Transmission Date: 20241017
  Serious: Yes (Other)
  Sender: BAUSCH AND LOMB
  Company Number: US-BAUSCH-BL-2024-011381

PATIENT
  Age: 82 Year
  Sex: Female

DRUGS (1)
  1. XIFAXAN [Suspect]
     Active Substance: RIFAXIMIN
     Indication: Product used for unknown indication
     Route: 048

REACTIONS (5)
  - Joint swelling [Unknown]
  - Skin discolouration [Unknown]
  - Pain in extremity [Unknown]
  - Sinusitis [Unknown]
  - Mouth swelling [Unknown]
